FAERS Safety Report 8395561-4 (Version None)
Quarter: 2012Q2

REPORT INFORMATION
  Report Type: 
  Country: None (occurrence: None)
  Receive Date: 20120530
  Receipt Date: 20110822
  Transmission Date: 20120825
  Serious: No
  Sender: FDA-Public Use
  Company Number: US-GLAXOSMITHKLINE-A0941867A

PATIENT
  Age: 74 Year
  Sex: Female

DRUGS (8)
  1. KLOR-CON [Concomitant]
  2. LISINOPRIL [Concomitant]
  3. AMLODIPINE BESYLATE [Concomitant]
  4. VENTOLIN [Suspect]
     Indication: DYSPNOEA
     Dosage: 1PUFF ALTERNATE DAYS
     Route: 055
     Dates: start: 20110725, end: 20110801
  5. METOPROLOL TARTRATE [Concomitant]
  6. HYDRALAZINE HCL [Concomitant]
  7. PLAVIX [Concomitant]
  8. SIMVASTATIN [Concomitant]

REACTIONS (2)
  - DYSPNOEA [None]
  - DRUG INEFFECTIVE [None]
